FAERS Safety Report 7788279-X (Version None)
Quarter: 2011Q3

REPORT INFORMATION
  Report Type: 
  Country: None (occurrence: None)
  Receive Date: 20110930
  Receipt Date: 20110921
  Transmission Date: 20111222
  Serious: Yes (Hospitalization)
  Sender: FDA-Public Use
  Company Number: CA-JNJFOC-20110806811

PATIENT
  Sex: Female
  Weight: 88 kg

DRUGS (4)
  1. IMURAN [Concomitant]
     Route: 048
  2. SOTALOL HCL [Concomitant]
     Route: 048
  3. REMICADE [Suspect]
     Indication: CROHN'S DISEASE
     Route: 042
     Dates: start: 20060601
  4. OXAZEPAM [Concomitant]
     Route: 048

REACTIONS (2)
  - SMALL INTESTINAL OBSTRUCTION [None]
  - INTESTINAL RESECTION [None]
